FAERS Safety Report 4600442-5 (Version None)
Quarter: 2005Q1

REPORT INFORMATION
  Report Type: 
  Country: None (occurrence: None)
  Receive Date: 20050304
  Receipt Date: 20050221
  Transmission Date: 20050727
  Serious: Yes (Death, Hospitalization)
  Sender: FDA-Public Use
  Company Number: FABR-11010

PATIENT
  Age: 44 Year
  Sex: Male
  Weight: 62 kg

DRUGS (1)
  1. FABRAZYME [Suspect]
     Indication: FABRY'S DISEASE
     Dosage: 70 MG Q2WKS IV
     Route: 042
     Dates: start: 20031128, end: 20041123

REACTIONS (5)
  - COMA [None]
  - DISEASE PROGRESSION [None]
  - FABRY'S DISEASE [None]
  - HAEMANGIOMA [None]
  - ISCHAEMIC STROKE [None]
